FAERS Safety Report 18041042 (Version 1)
Quarter: 2020Q3

REPORT INFORMATION
  Report Type: Spontaneous
  Country: US (occurrence: US)
  Receive Date: 20200718
  Receipt Date: 20200718
  Transmission Date: 20201103
  Serious: No
  Sender: FDA-Public Use
  Company Number: US-GALDERMA-US2020008060

PATIENT
  Age: 40 Year
  Sex: Female

DRUGS (4)
  1. CETAPHIL PRO OIL ABSORBING SPF 30 [Suspect]
     Active Substance: AVOBENZONE\OCTISALATE\OCTOCRYLENE
     Indication: PROPHYLAXIS
     Route: 061
     Dates: start: 201511
  2. CETAPHIL MOISTURIZING LOTION [Suspect]
     Active Substance: COSMETICS
     Indication: PROPHYLAXIS
     Route: 061
     Dates: start: 201511
  3. ADAPALENE GEL, 0.3% [Suspect]
     Active Substance: ADAPALENE
     Indication: ACNE
     Dosage: 0.3%
     Route: 061
     Dates: start: 201511
  4. NEUTROGENA ULTRA GENTLE FOAMING CLEANSER [Concomitant]
     Indication: PROPHYLAXIS
     Route: 061
     Dates: start: 201511

REACTIONS (3)
  - Rash papular [Not Recovered/Not Resolved]
  - Erythema [Not Recovered/Not Resolved]
  - Rash macular [Not Recovered/Not Resolved]

NARRATIVE: CASE EVENT DATE: 20200105
